FAERS Safety Report 9961613 (Version 1)
Quarter: 2014Q1

REPORT INFORMATION
  Report Type: Report from Study
  Country: US (occurrence: US)
  Receive Date: 20140305
  Receipt Date: 20140305
  Transmission Date: 20141002
  Serious: No
  Sender: FDA-Public Use
  Company Number: US-ABBVIE-13P-163-1114436-00

PATIENT
  Age: 52 Year
  Sex: Male
  Weight: 68.1 kg

DRUGS (5)
  1. HUMIRA [Suspect]
     Indication: COLITIS ULCERATIVE
     Route: 058
     Dates: start: 201304, end: 201304
  2. HUMIRA [Suspect]
     Route: 058
     Dates: start: 201304, end: 201304
  3. HUMIRA [Suspect]
     Route: 058
     Dates: start: 201305
  4. PREDNISONE [Suspect]
     Indication: COLITIS ULCERATIVE
     Dosage: TAPER
     Dates: start: 201302, end: 201305
  5. LIALDA [Concomitant]
     Indication: COLITIS ULCERATIVE

REACTIONS (7)
  - Vision blurred [Not Recovered/Not Resolved]
  - Back pain [Not Recovered/Not Resolved]
  - Psoriasis [Not Recovered/Not Resolved]
  - Fatigue [Not Recovered/Not Resolved]
  - Nodule [Not Recovered/Not Resolved]
  - Visual impairment [Not Recovered/Not Resolved]
  - Visual impairment [Not Recovered/Not Resolved]
